FAERS Safety Report 23673467 (Version 1)
Quarter: 2024Q1

REPORT INFORMATION
  Report Type: Spontaneous
  Country: KR (occurrence: KR)
  Receive Date: 20240326
  Receipt Date: 20240326
  Transmission Date: 20240410
  Serious: Yes (Other)
  Sender: FDA-Public Use
  Company Number: KR-KOWA-24JP000385

PATIENT
  Age: 8 Decade
  Sex: Female

DRUGS (1)
  1. EZETIMIBE\PITAVASTATIN CALCIUM [Suspect]
     Active Substance: EZETIMIBE\PITAVASTATIN CALCIUM
     Indication: Product used for unknown indication
     Dosage: UNK, UNK
     Route: 048
     Dates: start: 20231123, end: 20240317

REACTIONS (1)
  - Platelet count decreased [Unknown]

NARRATIVE: CASE EVENT DATE: 20240314
